FAERS Safety Report 7381227-6 (Version None)
Quarter: 2011Q1

REPORT INFORMATION
  Report Type: 
  Country: None (occurrence: None)
  Receive Date: 20110321
  Receipt Date: 20110303
  Transmission Date: 20110831
  Serious: Yes (Other)
  Sender: FDA-Public Use
  Company Number: 2011P1004481

PATIENT
  Age: 85 Year
  Sex: Male
  Weight: 124.7392 kg

DRUGS (3)
  1. TRIAMTERENE [Concomitant]
  2. CLOTRIMAZOLE [Suspect]
     Indication: TINEA CRURIS
     Dosage: TOP; BID; TOP
     Route: 061
     Dates: start: 20090101, end: 20100801
  3. CLOTRIMAZOLE [Suspect]
     Indication: TINEA CRURIS
     Dosage: TOP; BID; TOP
     Route: 061
     Dates: start: 20100801, end: 20110301

REACTIONS (2)
  - SINUS OPERATION [None]
  - DRUG INEFFECTIVE [None]
